FAERS Safety Report 6870606-9 (Version None)
Quarter: 2010Q3

REPORT INFORMATION
  Report Type: 
  Country: None (occurrence: None)
  Receive Date: 20100723
  Receipt Date: 20100712
  Transmission Date: 20110219
  Serious: Yes (Other)
  Sender: FDA-Public Use
  Company Number: PHHY2010IT46089

PATIENT
  Age: 20 Year
  Sex: Female

DRUGS (7)
  1. DEFERASIROX [Suspect]
     Indication: THALASSAEMIA BETA
     Dosage: 30 MG/KG/DAY
  2. DEFERASIROX [Suspect]
     Indication: IRON OVERLOAD
     Dosage: 20 MG/KG/DAY
  3. DEFERASIROX [Suspect]
     Dosage: 20 MG/KG/DAY
  4. DEFERASIROX [Suspect]
     Dosage: 20 MG/KG/DAY
  5. DEFERASIROX [Suspect]
     Dosage: 30 MG/KG/DAY ADMINISTERED ON ALTERNATING DAYS
  6. DEFERIPRONE [Concomitant]
     Dosage: 85 MG/KG IN THREE DOSES/DAY ADMINISTERED ON ALTERNATING DAYS
  7. RED BLOOD CELLS [Concomitant]
     Dosage: 0.56 ML RED BLOOD CELLS/KG/DAY

REACTIONS (5)
  - ARTHRALGIA [None]
  - CARDIOMYOPATHY [None]
  - LIVER DISORDER [None]
  - PROTEINURIA [None]
  - SERUM FERRITIN INCREASED [None]
